FAERS Safety Report 24118710 (Version 1)
Quarter: 2024Q3

REPORT INFORMATION
  Report Type: Report from Study
  Country: US (occurrence: US)
  Receive Date: 20240722
  Receipt Date: 20240722
  Transmission Date: 20241017
  Serious: No
  Sender: ACADIA PHARMACEUTICALS
  Company Number: US-ACADIA PHARMACEUTICALS INC.-ACA-2024-PIM-003020

PATIENT
  Sex: Male

DRUGS (14)
  1. NUPLAZID [Suspect]
     Active Substance: PIMAVANSERIN TARTRATE
     Indication: Parkinson^s disease psychosis
     Dosage: 34 MILLIGRAM, QD
     Route: 048
     Dates: start: 20240511
  2. ATORVASTATIN [Concomitant]
     Active Substance: ATORVASTATIN
  3. CARBIDOPA\LEVODOPA [Concomitant]
     Active Substance: CARBIDOPA\LEVODOPA
  4. CLONAZEPAM [Concomitant]
     Active Substance: CLONAZEPAM
  5. CYANOCOBALAMIN [Concomitant]
     Active Substance: CYANOCOBALAMIN
  6. DONEPEZIL [Concomitant]
     Active Substance: DONEPEZIL\DONEPEZIL HYDROCHLORIDE
  7. DUTASTERIDE [Concomitant]
     Active Substance: DUTASTERIDE
  8. FUROSEMIDE [Concomitant]
     Active Substance: FUROSEMIDE
  9. LOSARTAN [Concomitant]
     Active Substance: LOSARTAN
  10. MELATONIN [Concomitant]
     Active Substance: MELATONIN
  11. PEG 3350 [Concomitant]
     Active Substance: POLYETHYLENE GLYCOL 3350
  12. QUETIAPINE [Concomitant]
     Active Substance: QUETIAPINE
  13. TAMSULOSIN [Concomitant]
     Active Substance: TAMSULOSIN
  14. TRAMADOL [Concomitant]
     Active Substance: TRAMADOL\TRAMADOL HYDROCHLORIDE

REACTIONS (1)
  - Rash [Recovering/Resolving]
